FAERS Safety Report 10030838 (Version 1)
Quarter: 2014Q1

REPORT INFORMATION
  Report Type: Spontaneous
  Country: US (occurrence: US)
  Receive Date: 20140323
  Receipt Date: 20140323
  Transmission Date: 20141002
  Serious: No
  Sender: FDA-Public Use
  Company Number: US-ALLERGAN-1313457US

PATIENT
  Age: 46 Year
  Sex: Female

DRUGS (4)
  1. LATISSE 0.03% [Suspect]
     Indication: GROWTH OF EYELASHES
     Dosage: 4 GTT, QHS
     Route: 061
     Dates: start: 20130828, end: 20130829
  2. LATISSE 0.03% [Suspect]
     Dosage: 4 GTT, QAM
     Route: 061
     Dates: start: 20130830, end: 20130830
  3. TRAMADOL [Suspect]
     Indication: PRODUCT USED FOR UNKNOWN INDICATION
     Dosage: UNK UNK, BID
     Route: 048
     Dates: start: 201307
  4. KLONOPIN [Concomitant]
     Indication: PRODUCT USED FOR UNKNOWN INDICATION

REACTIONS (6)
  - Dermatitis contact [Unknown]
  - Rash erythematous [Unknown]
  - Incorrect dose administered [Unknown]
  - Inappropriate schedule of drug administration [Unknown]
  - Adverse event [Unknown]
  - Drug withdrawal syndrome [Unknown]
